FAERS Safety Report 5941283-6 (Version None)
Quarter: 2008Q4

REPORT INFORMATION
  Report Type: 
  Country: None (occurrence: None)
  Receive Date: 20081103
  Receipt Date: 20081103
  Transmission Date: 20090506
  Serious: Yes (Other)
  Sender: FDA-Public Use
  Company Number: None

PATIENT
  Sex: Female
  Weight: 57.1532 kg

DRUGS (1)
  1. ACTONEL [Suspect]
     Indication: OSTEOPENIA
     Dosage: 150 MG. MONTHLY PO
     Route: 048
     Dates: start: 20080701, end: 20080901

REACTIONS (2)
  - ARTHRALGIA [None]
  - JOINT SWELLING [None]
